FAERS Safety Report 18235840 (Version 3)
Quarter: 2021Q1

REPORT INFORMATION
  Report Type: Spontaneous
  Country: US (occurrence: US)
  Receive Date: 20200905
  Receipt Date: 20210120
  Transmission Date: 20210419
  Serious: No
  Sender: FDA-Public Use
  Company Number: NVSC2020US243293

PATIENT
  Sex: Male

DRUGS (1)
  1. COSENTYX [Suspect]
     Active Substance: SECUKINUMAB
     Indication: PRODUCT USED FOR UNKNOWN INDICATION
     Dosage: 300 MG, Q4W
     Route: 065

REACTIONS (7)
  - Device defective [Unknown]
  - Wrong schedule [Unknown]
  - Device malfunction [Unknown]
  - Incorrect dose administered [Unknown]
  - Spinal pain [Unknown]
  - Administration site indentation [Unknown]
  - Product dose omission issue [Unknown]
